FAERS Safety Report 18045765 (Version 3)
Quarter: 2020Q3

REPORT INFORMATION
  Report Type: Spontaneous
  Country: US (occurrence: US)
  Receive Date: 20200720
  Receipt Date: 20200903
  Transmission Date: 20201103
  Serious: No
  Sender: FDA-Public Use
  Company Number: US-ASTRAZENECA-2020SE90026

PATIENT
  Sex: Male
  Weight: 69 kg

DRUGS (1)
  1. SYMBICORT [Suspect]
     Active Substance: BUDESONIDE\FORMOTEROL FUMARATE DIHYDRATE
     Dosage: 160/4.5 MCG 120 INHALATIONS,TWO TIMES A DAY
     Route: 055
     Dates: start: 201805

REACTIONS (4)
  - Drug ineffective [Unknown]
  - Product taste abnormal [Unknown]
  - Device malfunction [Unknown]
  - Intentional device misuse [Unknown]
